FAERS Safety Report 16159708 (Version 1)
Quarter: 2019Q2

REPORT INFORMATION
  Report Type: Spontaneous
  Country: US (occurrence: US)
  Receive Date: 20190301
  Receipt Date: 20190301
  Transmission Date: 20190711
  Serious: No
  Sender: FDA-Public Use
  Company Number: None

PATIENT
  Age: 73 Year
  Sex: Female

DRUGS (2)
  1. ENOXAPARIN INJ 100MG/ML [Suspect]
     Active Substance: ENOXAPARIN SODIUM
     Indication: THROMBOPHLEBITIS
     Route: 058
     Dates: start: 201901
  2. ENOXAPARIN INJ 100MG/ML [Suspect]
     Active Substance: ENOXAPARIN SODIUM
     Indication: PHLEBITIS
     Route: 058
     Dates: start: 201901

REACTIONS (3)
  - Inappropriate schedule of product administration [None]
  - Insurance issue [None]
  - Product dose omission [None]

NARRATIVE: CASE EVENT DATE: 20190225
